FAERS Safety Report 9388630 (Version 2)
Quarter: 2013Q4

REPORT INFORMATION
  Report Type: Spontaneous
  Country: CA (occurrence: CA)
  Receive Date: 20130708
  Receipt Date: 20131014
  Transmission Date: 20140711
  Serious: Yes (Hospitalization)
  Sender: FDA-Public Use
  Company Number: CA-BAYER-2013-080961

PATIENT
  Age: 53 Year
  Sex: Male

DRUGS (8)
  1. ASPIRIN [Suspect]
     Indication: PRODUCT USED FOR UNKNOWN INDICATION
     Dosage: 80 MG, QD
     Route: 065
     Dates: start: 20081231
  2. CLOPIDOGREL BISULFATE [Suspect]
     Indication: PRODUCT USED FOR UNKNOWN INDICATION
     Dosage: 75 MG, QD
     Route: 065
     Dates: start: 20081230
  3. BISOPROLOL [Concomitant]
     Dosage: UNK
     Dates: start: 20090210
  4. ISOSORBIDE MONONITRATE [Concomitant]
     Dosage: UNK
     Dates: start: 20090827
  5. NITROGLYCERIN [Concomitant]
     Dosage: 3 PUFFS
  6. PERINDOPRIL ERBUMINE [Concomitant]
     Dosage: UNK
     Dates: start: 20081128
  7. ROSUVASTATIN [Concomitant]
     Dosage: UNK
     Dates: start: 20081126
  8. ISOSORBIDE DINITRATE [Concomitant]
     Dosage: UNK
     Dates: start: 20081129

REACTIONS (1)
  - Chest pain [Not Recovered/Not Resolved]
